FAERS Safety Report 4883452-2 (Version None)
Quarter: 2006Q1

REPORT INFORMATION
  Report Type: 
  Country: None (occurrence: None)
  Receive Date: 20060118
  Receipt Date: 20050317
  Transmission Date: 20060701
  Serious: Yes (Hospitalization, Disabling)
  Sender: FDA-Public Use
  Company Number: US-MERCK-0503USA03464

PATIENT
  Age: 43 Year
  Sex: Female
  Weight: 68 kg

DRUGS (8)
  1. VIOXX [Suspect]
     Indication: PAIN
     Route: 048
     Dates: start: 20020101, end: 20040101
  2. ULTRAM [Concomitant]
     Route: 065
  3. KEFLEX [Concomitant]
     Route: 065
  4. VICODIN [Concomitant]
     Route: 065
  5. BEXTRA [Concomitant]
     Route: 065
  6. PHENERGAN [Concomitant]
     Route: 065
  7. ZANTAC [Concomitant]
     Route: 065
  8. POTASSIUM CHLORIDE [Concomitant]
     Route: 065

REACTIONS (11)
  - ANAEMIA [None]
  - ARTHROPATHY [None]
  - CEREBROVASCULAR ACCIDENT [None]
  - DEEP VEIN THROMBOSIS [None]
  - DYSPNOEA [None]
  - GASTROENTERITIS [None]
  - LIMB INJURY [None]
  - NAUSEA [None]
  - PERFORATED ULCER [None]
  - PNEUMONIA [None]
  - VOMITING [None]
